FAERS Safety Report 8029741 (Version 11)
Quarter: 2013Q2

REPORT INFORMATION
  Report Type: Report from Study
  Country: US (occurrence: US)
  Receive Date: 20110711
  Receipt Date: 20130509
  Transmission Date: 20140414
  Serious: Yes (Death, Life-Threatening, Hospitalization, Disabling, Other)
  Sender: FDA-Public Use
  Company Number: US-CELGENEUS-163-21880-11070360

PATIENT
  Age: 65 Year
  Sex: Female
  Weight: 90.8 kg

DRUGS (22)
  1. REVLIMID [Suspect]
     Indication: PLASMA CELL MYELOMA
     Dosage: 25 MILLIGRAM
     Route: 048
     Dates: start: 20101207, end: 20110609
  2. REVLIMID [Suspect]
     Dosage: 5-10MG
     Route: 048
     Dates: end: 20120501
  3. VELCADE [Suspect]
     Indication: PLASMA CELL MYELOMA
     Route: 041
     Dates: start: 20101212, end: 20110602
  4. VELCADE [Suspect]
     Route: 041
     Dates: end: 20120410
  5. DEXAMETHASONE [Suspect]
     Indication: PLASMA CELL MYELOMA
     Route: 048
     Dates: start: 20101218, end: 20110602
  6. DEXAMETHASONE [Suspect]
     Dosage: 40-20MG
     Route: 048
     Dates: end: 20120410
  7. DEXAMETHASONE [Suspect]
     Dosage: 10 MILLIGRAM
     Route: 041
  8. PREDNISONE [Suspect]
     Indication: PLASMA CELL MYELOMA
     Route: 041
  9. DOXIL [Concomitant]
     Indication: PLASMA CELL MYELOMA
     Route: 041
     Dates: start: 20110831, end: 20111227
  10. BETASERON [Concomitant]
     Indication: PRODUCT USED FOR UNKNOWN INDICATION
     Route: 065
  11. LOTREL [Concomitant]
     Indication: PRODUCT USED FOR UNKNOWN INDICATION
     Route: 065
  12. HEOCYTE [Concomitant]
     Indication: PRODUCT USED FOR UNKNOWN INDICATION
     Route: 065
  13. ACYCLOVIR [Concomitant]
     Indication: PRODUCT USED FOR UNKNOWN INDICATION
     Route: 065
  14. METFORMIN [Concomitant]
     Indication: PRODUCT USED FOR UNKNOWN INDICATION
     Route: 065
  15. WARFARIN [Concomitant]
     Indication: PRODUCT USED FOR UNKNOWN INDICATION
     Route: 065
  16. ALLOPURINOL [Concomitant]
     Indication: PRODUCT USED FOR UNKNOWN INDICATION
     Route: 065
  17. COREG [Concomitant]
     Indication: PRODUCT USED FOR UNKNOWN INDICATION
     Route: 065
  18. TRICORE [Concomitant]
     Indication: PRODUCT USED FOR UNKNOWN INDICATION
     Route: 065
  19. PRAVASTATIN [Concomitant]
     Indication: PRODUCT USED FOR UNKNOWN INDICATION
     Route: 065
  20. DOXEPIN [Concomitant]
     Indication: PRODUCT USED FOR UNKNOWN INDICATION
     Route: 065
  21. ASPIRIN [Concomitant]
     Indication: PRODUCT USED FOR UNKNOWN INDICATION
     Route: 065
  22. VITAMIN D [Concomitant]
     Indication: PRODUCT USED FOR UNKNOWN INDICATION
     Route: 065

REACTIONS (22)
  - Respiratory failure [Fatal]
  - Plasma cell myeloma [Fatal]
  - Dyspnoea [Recovered/Resolved]
  - Febrile neutropenia [Recovered/Resolved]
  - Asthenia [Recovered/Resolved]
  - Respiratory failure [Unknown]
  - Hypogammaglobulinaemia [Recovered/Resolved]
  - Pulmonary hypertension [Not Recovered/Not Resolved]
  - Encephalopathy [Not Recovered/Not Resolved]
  - Immunosuppression [Not Recovered/Not Resolved]
  - Acute myocardial infarction [Recovered/Resolved]
  - Pneumonia [Not Recovered/Not Resolved]
  - Cardiac failure congestive [Not Recovered/Not Resolved]
  - Renal failure acute [Not Recovered/Not Resolved]
  - Clostridium difficile infection [Recovered/Resolved]
  - Renal tubular necrosis [Recovered/Resolved]
  - Gastrointestinal haemorrhage [Recovered/Resolved]
  - Pneumonia [Recovered/Resolved]
  - Atrial fibrillation [Recovered/Resolved]
  - Renal failure [Recovered/Resolved]
  - Malnutrition [Not Recovered/Not Resolved]
  - Urinary tract infection enterococcal [Recovered/Resolved]
